FAERS Safety Report 4575651-4 (Version None)
Quarter: 2005Q1

REPORT INFORMATION
  Report Type: 
  Country: None (occurrence: None)
  Receive Date: 20050209
  Receipt Date: 20050128
  Transmission Date: 20050727
  Serious: Yes (Hospitalization)
  Sender: FDA-Public Use
  Company Number: AU-GLAXOSMITHKLINE-B0370256A

PATIENT
  Age: 45 Year
  Sex: Female
  Weight: 80 kg

DRUGS (2)
  1. IMIGRAN [Suspect]
     Indication: ILL-DEFINED DISORDER
     Route: 065
  2. TRISEQUENS [Suspect]
     Indication: MENOPAUSAL SYMPTOMS
     Route: 048
     Dates: start: 19950506

REACTIONS (2)
  - CEREBRAL THROMBOSIS [None]
  - COMA [None]
